FAERS Safety Report 16985993 (Version 1)
Quarter: 2019Q4

REPORT INFORMATION
  Report Type: Spontaneous
  Country: US (occurrence: US)
  Receive Date: 20191031
  Receipt Date: 20191031
  Transmission Date: 20200122
  Serious: No
  Sender: FDA-Public Use
  Company Number: None

PATIENT
  Age: 51 Year
  Sex: Female

DRUGS (1)
  1. KETAMINE [Suspect]
     Active Substance: KETAMINE
     Dosage: ?          OTHER FREQUENCY:1Q 4-6H, MAX 3XWK;?
     Route: 045
     Dates: start: 20191017

REACTIONS (1)
  - Throat irritation [None]

NARRATIVE: CASE EVENT DATE: 20191030
